FAERS Safety Report 9774574 (Version 1)
Quarter: 2013Q4

REPORT INFORMATION
  Report Type: Spontaneous
  Country: US (occurrence: US)
  Receive Date: 20131220
  Receipt Date: 20131220
  Transmission Date: 20140711
  Serious: Yes (Hospitalization)
  Sender: FDA-Public Use
  Company Number: US-BAYER-2013-154072

PATIENT
  Age: 45 Year
  Sex: Female
  Weight: 86.62 kg

DRUGS (18)
  1. YASMIN [Suspect]
  2. PROMETHAZINE [Concomitant]
     Dosage: 25 MG, UNK
  3. IMITREX [Concomitant]
     Dosage: 100 MG, UNK
  4. RELPAX [Concomitant]
     Dosage: 40 MG, UNK
  5. LOPRESSOR [Concomitant]
     Dosage: 50 MG, UNK
  6. ZOCOR [Concomitant]
     Dosage: 40 MG, UNK
  7. HYDROCHLOROTHIAZIDE [Concomitant]
     Dosage: 25 MG, UNK
  8. TORADOL [Concomitant]
  9. COMPAZINE [Concomitant]
     Dosage: UNK
     Route: 042
     Dates: start: 20100712
  10. BENADRYL [Concomitant]
     Dosage: UNK
     Route: 042
     Dates: start: 20100712
  11. DECADRON [Concomitant]
     Dosage: UNK
     Route: 042
     Dates: start: 20100712
  12. ZOFRAN [Concomitant]
     Dosage: UNK
     Route: 042
     Dates: start: 20100712
  13. MORPHINE [Concomitant]
     Dosage: 8 MG, UNK
     Route: 042
  14. VICODIN [Concomitant]
     Dosage: 5-500 MG
  15. MULTIVITAMINS [Concomitant]
  16. HYDROCODONE W/APAP [Concomitant]
  17. OXYCODONE [Concomitant]
  18. FISH OIL [Concomitant]

REACTIONS (2)
  - Deep vein thrombosis [None]
  - Pulmonary embolism [None]
